FAERS Safety Report 5258303-7 (Version None)
Quarter: 2007Q1

REPORT INFORMATION
  Report Type: 
  Country: None (occurrence: None)
  Receive Date: 20070306
  Receipt Date: 20070306
  Transmission Date: 20070707
  Serious: Yes (Other)
  Sender: FDA-Public Use
  Company Number: None

PATIENT
  Sex: Female

DRUGS (1)
  1. VICODIN HP [Suspect]
     Dosage: 1-2 TID PRN # 150

REACTIONS (2)
  - ABDOMINAL DISCOMFORT [None]
  - CONSTIPATION [None]
